FAERS Safety Report 6633161-4 (Version None)
Quarter: 2010Q1

REPORT INFORMATION
  Report Type: 
  Country: None (occurrence: None)
  Receive Date: 20100312
  Receipt Date: 20100302
  Transmission Date: 20100710
  Serious: Yes (Other)
  Sender: FDA-Public Use
  Company Number: CN-PFIZER INC-2010027018

PATIENT
  Age: 60 Year
  Sex: Male

DRUGS (2)
  1. CEFOPERAZONE SODIUM, SULBACTAM SODIUM [Suspect]
     Indication: LUNG INFECTION
     Dosage: 2 G, DAILY
     Route: 042
     Dates: start: 20050101, end: 20050101
  2. PENICILLIN NOS [Concomitant]
     Indication: LUNG INFECTION
     Dosage: 6400 KIU, DAILY
     Route: 042
     Dates: start: 20050101, end: 20050101

REACTIONS (1)
  - RENAL IMPAIRMENT [None]
